FAERS Safety Report 9416878 (Version 5)
Quarter: 2014Q1

REPORT INFORMATION
  Report Type: Report from Study
  Country: US (occurrence: US)
  Receive Date: 20130724
  Receipt Date: 20140213
  Transmission Date: 20141002
  Serious: Yes (Hospitalization)
  Sender: FDA-Public Use
  Company Number: US-SANOFI-AVENTIS-2013SA073772

PATIENT
  Age: 68 Year
  Sex: Male

DRUGS (1)
  1. AUBAGIO [Suspect]
     Indication: MULTIPLE SCLEROSIS
     Dosage: PRODUCT START 3 WEEKS AGO
     Route: 048

REACTIONS (10)
  - Asthenia [Unknown]
  - Night sweats [Unknown]
  - Hiatus hernia [Unknown]
  - Dizziness [Unknown]
  - Vertigo [Unknown]
  - Ulcer haemorrhage [Unknown]
  - Tremor [Unknown]
  - Fear [Unknown]
  - Pain in extremity [Not Recovered/Not Resolved]
  - Alopecia [Unknown]
